FAERS Safety Report 5885304-8 (Version None)
Quarter: 2008Q3

REPORT INFORMATION
  Report Type: 
  Country: None (occurrence: None)
  Receive Date: 20080915
  Receipt Date: 20080915
  Transmission Date: 20090109
  Serious: Yes (Other)
  Sender: FDA-Public Use
  Company Number: None

PATIENT
  Age: 54 Year
  Sex: Female
  Weight: 79.3795 kg

DRUGS (2)
  1. CYMBALTA [Suspect]
     Indication: DEPRESSION
     Dosage: 40 MG  1 Q DAY PO
     Route: 048
     Dates: start: 20080616, end: 20080827
  2. CYMBALTA [Suspect]
     Indication: PAIN
     Dosage: 40 MG  1 Q DAY PO
     Route: 048
     Dates: start: 20080616, end: 20080827

REACTIONS (7)
  - ABNORMAL BEHAVIOUR [None]
  - DELUSION [None]
  - HALLUCINATIONS, MIXED [None]
  - IRRITABILITY [None]
  - PARANOIA [None]
  - SUSPICIOUSNESS [None]
  - THINKING ABNORMAL [None]
